FAERS Safety Report 19208056 (Version 1)
Quarter: 2021Q2

REPORT INFORMATION
  Report Type: Spontaneous
  Country: US (occurrence: US)
  Receive Date: 20210503
  Receipt Date: 20210503
  Transmission Date: 20210717
  Serious: No
  Sender: FDA-Public Use
  Company Number: US-ABBVIE-20K-163-3627195-00

PATIENT
  Sex: Female

DRUGS (1)
  1. CREON [Suspect]
     Active Substance: PANCRELIPASE AMYLASE\PANCRELIPASE LIPASE\PANCRELIPASE PROTEASE
     Indication: PRODUCT USED FOR UNKNOWN INDICATION
     Route: 048

REACTIONS (8)
  - Obesity [Unknown]
  - Malabsorption [Unknown]
  - Therapeutic product effect incomplete [Unknown]
  - Dehydration [Unknown]
  - Weight increased [Unknown]
  - Mobility decreased [Unknown]
  - Diarrhoea [Recovering/Resolving]
  - Anal incontinence [Unknown]
